FAERS Safety Report 14112500 (Version 1)
Quarter: 2017Q4

REPORT INFORMATION
  Report Type: Spontaneous
  Country: US (occurrence: US)
  Receive Date: 20171020
  Receipt Date: 20171020
  Transmission Date: 20180321
  Serious: Yes (Death)
  Sender: FDA-Public Use
  Company Number: US-PETNET SOLUTIONS, INC.-2031079

PATIENT
  Age: 55 Year
  Sex: Female

DRUGS (1)
  1. FLUDEOXYGLUCOSE F-18. [Suspect]
     Active Substance: FLUDEOXYGLUCOSE F-18
     Indication: POSITRON EMISSION TOMOGRAM
     Route: 040
     Dates: start: 20171004, end: 20171004

REACTIONS (1)
  - Death [None]

NARRATIVE: CASE EVENT DATE: 20171006
